FAERS Safety Report 8421255-2 (Version None)
Quarter: 2012Q2

REPORT INFORMATION
  Report Type: 
  Country: None (occurrence: None)
  Receive Date: 20120604
  Receipt Date: 20120604
  Transmission Date: 20120825
  Serious: No
  Sender: FDA-Public Use
  Company Number: None

PATIENT
  Sex: Male

DRUGS (1)
  1. PEGASYS [Suspect]
     Indication: HEPATITIS C
     Dosage: 180 MCG/0.5ML PO INJECT 180MCG (0.5ML) SUBCUTANEOUSLY EVERY WEEK **KEEP REFRIGERATED**
     Route: 058
     Dates: start: 20120405

REACTIONS (3)
  - SKIN EXFOLIATION [None]
  - PRURITUS [None]
  - ERYTHEMA [None]
